FAERS Safety Report 23809024 (Version 2)
Quarter: 2024Q3

REPORT INFORMATION
  Report Type: Report from Study
  Country: PH (occurrence: PH)
  Receive Date: 20240502
  Receipt Date: 20240805
  Transmission Date: 20241016
  Serious: Yes (Death, Hospitalization)
  Sender: OTSUKA
  Company Number: PH-OTSUKA-2024_012063

PATIENT
  Age: 83 Year
  Sex: Male

DRUGS (6)
  1. TOLVAPTAN [Suspect]
     Active Substance: TOLVAPTAN
     Indication: Polyuria
     Dosage: 0.5 DF, QD (HALF TABLET ONCE A DAY)
     Route: 048
  2. TOLVAPTAN [Suspect]
     Active Substance: TOLVAPTAN
     Indication: Blood sodium decreased
  3. TOLVAPTAN [Suspect]
     Active Substance: TOLVAPTAN
     Indication: Cardiac disorder
  4. CYCLOSPORINE [Concomitant]
     Active Substance: CYCLOSPORINE
     Indication: Product used for unknown indication
     Dosage: UNK
     Route: 065
  5. NEORAL [Concomitant]
     Active Substance: CYCLOSPORINE
     Indication: Product used for unknown indication
     Dosage: UNK
     Route: 065
  6. MYFORTIC [Concomitant]
     Active Substance: MYCOPHENOLATE SODIUM
     Indication: Product used for unknown indication
     Dosage: UNK
     Route: 065

REACTIONS (7)
  - COVID-19 [Fatal]
  - Cyst removal [Recovering/Resolving]
  - Infected cyst [Recovering/Resolving]
  - Haemoglobin decreased [Recovering/Resolving]
  - Pyrexia [Recovering/Resolving]
  - Wrong technique in product usage process [Unknown]
  - Underdose [Unknown]

NARRATIVE: CASE EVENT DATE: 20240421
